FAERS Safety Report 8382157-3 (Version None)
Quarter: 2012Q2

REPORT INFORMATION
  Report Type: 
  Country: None (occurrence: None)
  Receive Date: 20120524
  Receipt Date: 20120517
  Transmission Date: 20120825
  Serious: Yes (Hospitalization)
  Sender: FDA-Public Use
  Company Number: US-PFIZER INC-2012120360

PATIENT
  Sex: Male
  Weight: 90 kg

DRUGS (4)
  1. AMBRISENTAN [Suspect]
     Indication: PULMONARY HYPERTENSION
     Dosage: 10 MG, UNK
     Route: 048
     Dates: start: 20120329
  2. AMBRISENTAN [Suspect]
     Indication: CHRONIC OBSTRUCTIVE PULMONARY DISEASE
  3. REVATIO [Suspect]
     Dosage: UNK
  4. TYVASO [Suspect]
     Indication: PULMONARY HYPERTENSION
     Dosage: 54 UG (9 BREATHS), 4X/DAY
     Route: 045
     Dates: start: 20120328

REACTIONS (5)
  - CHRONIC OBSTRUCTIVE PULMONARY DISEASE [None]
  - RIGHT VENTRICULAR FAILURE [None]
  - VENTILATION PERFUSION MISMATCH [None]
  - HYPOXIA [None]
  - PULMONARY HYPERTENSION [None]
